FAERS Safety Report 14576864 (Version 1)
Quarter: 2018Q1

REPORT INFORMATION
  Report Type: Spontaneous
  Country: US (occurrence: US)
  Receive Date: 20180225
  Receipt Date: 20180225
  Transmission Date: 20180509
  Serious: No
  Sender: FDA-Public Use
  Company Number: None

PATIENT
  Age: 53 Year
  Sex: Female
  Weight: 51.75 kg

DRUGS (11)
  1. POTASSIUM ASPOROTATE [Concomitant]
  2. ESTRADIOL. [Concomitant]
     Active Substance: ESTRADIOL
  3. RANITIDINE. [Concomitant]
     Active Substance: RANITIDINE
  4. VITAMIN B COMPLEX [Concomitant]
     Active Substance: CYANOCOBALAMIN\DEXPANTHENOL\NIACINAMIDE\PYRIDOXINE HYDROCHLORIDE\RIBOFLAVIN 5^-PHOSPHATE SODIUM\THIAMINE HYDROCHLORIDE\VITAMIN B COMPLEX
  5. CHO-LESS [Concomitant]
  6. MAGNESIUM ASPOROTATE [Concomitant]
  7. 5-HTP [Concomitant]
     Active Substance: OXITRIPTAN
  8. TOBRAMYCIN OP 0.3% SOL [Suspect]
     Active Substance: TOBRAMYCIN
     Indication: CONJUNCTIVITIS
     Dosage: ?          QUANTITY:1 DROP(S);?
     Route: 047
  9. OMEGA 3 [Concomitant]
     Active Substance: OMEGA-3 FATTY ACIDS
  10. PROGESTERONE. [Concomitant]
     Active Substance: PROGESTERONE
  11. LISINOPRIL. [Concomitant]
     Active Substance: LISINOPRIL

REACTIONS (2)
  - Eye swelling [None]
  - Ocular hyperaemia [None]

NARRATIVE: CASE EVENT DATE: 20180223
